FAERS Safety Report 8209914-8 (Version None)
Quarter: 2012Q1

REPORT INFORMATION
  Report Type: 
  Country: None (occurrence: None)
  Receive Date: 20120314
  Receipt Date: 20120301
  Transmission Date: 20120608
  Serious: Yes (Hospitalization)
  Sender: FDA-Public Use
  Company Number: IL-ROCHE-1040013

PATIENT
  Sex: Male
  Weight: 92 kg

DRUGS (3)
  1. PEGINTERFERON ALFA-2A [Suspect]
     Indication: HEPATITIS C
     Dosage: LAST DOSE PRIOR TO SAE: 09/FEB/2012
     Route: 058
     Dates: start: 20110613
  2. COPEGUS [Suspect]
     Indication: HEPATITIS C
     Dosage: LAST DOSE PRIOR TO SAE: 10/FEB/2012
     Route: 048
     Dates: start: 20110613
  3. CYMBALTA [Concomitant]
     Dates: start: 20110526

REACTIONS (2)
  - HERNIA [None]
  - URINARY TRACT INFECTION [None]
